FAERS Safety Report 17150719 (Version 4)
Quarter: 2020Q3

REPORT INFORMATION
  Report Type: Spontaneous
  Country: PT (occurrence: PT)
  Receive Date: 20191213
  Receipt Date: 20200708
  Transmission Date: 20201102
  Serious: Yes (Death, Life-Threatening, Hospitalization, Other)
  Sender: FDA-Public Use
  Company Number: PT-AUROBINDO-AUR-APL-2019-075725

PATIENT
  Age: 66 Year
  Sex: Male

DRUGS (4)
  1. TACROLIMUS. [Suspect]
     Active Substance: TACROLIMUS
     Indication: RENAL TRANSPLANT
     Dosage: UNK
     Route: 065
  2. ALBENDAZOLE. [Suspect]
     Active Substance: ALBENDAZOLE
     Indication: BACTERIAL INFECTION
     Dosage: UNK
     Route: 065
  3. LINEZOLID. [Suspect]
     Active Substance: LINEZOLID
     Indication: BACTERIAL INFECTION
     Dosage: UNK
     Route: 065
  4. PREDNISOLONE. [Suspect]
     Active Substance: PREDNISOLONE
     Indication: RENAL TRANSPLANT
     Dosage: UNK
     Route: 065

REACTIONS (11)
  - Superinfection bacterial [Fatal]
  - Coma [Fatal]
  - Encephalitis [Fatal]
  - Pneumonia [Fatal]
  - Drug ineffective [Fatal]
  - Meningoencephalitis bacterial [Fatal]
  - Enterococcal infection [Fatal]
  - Strongyloidiasis [Fatal]
  - Cytomegalovirus infection [Fatal]
  - Respiratory failure [Fatal]
  - Disseminated strongyloidiasis [Fatal]
